FAERS Safety Report 16899670 (Version 2)
Quarter: 2019Q4

REPORT INFORMATION
  Report Type: Report from Study
  Country: JP (occurrence: JP)
  Receive Date: 20191009
  Receipt Date: 20191022
  Transmission Date: 20200122
  Serious: Yes (Hospitalization)
  Sender: FDA-Public Use
  Company Number: JP-ROCHE-2428523

PATIENT
  Age: 41 Year
  Sex: Male
  Weight: 77.6 kg

DRUGS (13)
  1. TRESIBA [Concomitant]
     Active Substance: INSULIN DEGLUDEC
     Indication: TYPE 2 DIABETES MELLITUS
     Dosage: DOSAGE REGIMEN: PROPER ADJUSTMENT
     Route: 058
     Dates: start: 20190520
  2. XYZAL [Concomitant]
     Active Substance: LEVOCETIRIZINE DIHYDROCHLORIDE
     Indication: PROPHYLAXIS
     Route: 048
     Dates: start: 20190213
  3. STIBRON [Concomitant]
     Indication: ECZEMA
     Dosage: DOSAGE REGIMEN: SINGLE USE
     Route: 061
     Dates: start: 2014
  4. THYRADIN-S [Concomitant]
     Active Substance: LEVOTHYROXINE
     Indication: HYPOTHYROIDISM
     Route: 048
     Dates: start: 20190426
  5. MIYA-BM [Concomitant]
     Active Substance: CLOSTRIDIUM BUTYRICUM SPORES STRAIN M-55
     Indication: PROPHYLAXIS AGAINST DIARRHOEA
     Dosage: DOSAGE REGIMEN: SINGLE USE
     Route: 048
     Dates: start: 201702
  6. TOCILIZUMAB. [Suspect]
     Active Substance: TOCILIZUMAB
     Indication: FAMILIAL MEDITERRANEAN FEVER
     Route: 058
     Dates: start: 20180822
  7. NOVORAPID [Concomitant]
     Active Substance: INSULIN ASPART
     Indication: TYPE 2 DIABETES MELLITUS
     Dosage: DOSAGE REGIMEN: PROPER ADJUSTMENT
     Route: 058
     Dates: start: 20181023
  8. WHITE PETROLATUM [Concomitant]
     Active Substance: PETROLATUM
     Indication: ECZEMA
     Dosage: DOSAGE REGIMEN: SINGLE USE
     Route: 061
     Dates: start: 2014
  9. COLCHICINE. [Concomitant]
     Active Substance: COLCHICINE
     Indication: FAMILIAL MEDITERRANEAN FEVER
     Route: 048
     Dates: start: 20180814
  10. ROSUVASTATIN. [Concomitant]
     Active Substance: ROSUVASTATIN
     Indication: DYSLIPIDAEMIA
     Route: 048
     Dates: start: 20181103
  11. ACTOS [Concomitant]
     Active Substance: PIOGLITAZONE HYDROCHLORIDE
     Indication: TYPE 2 DIABETES MELLITUS
     Route: 048
     Dates: start: 20190520
  12. FLUTIFORM [Concomitant]
     Active Substance: FLUTICASONE PROPIONATE\FORMOTEROL FUMARATE
     Indication: ASTHMA
     Dosage: DOSAGE REGIMEN: TWO INHALATIONS ONCE
     Route: 055
     Dates: start: 20190213
  13. HEPARINOID [Concomitant]
     Active Substance: CHONDROITIN SULFATE (BOVINE)
     Indication: ECZEMA
     Dosage: DOSAGE REGIMEN: SINGLE USE
     Route: 061
     Dates: start: 2014

REACTIONS (1)
  - Familial mediterranean fever [Recovered/Resolved]

NARRATIVE: CASE EVENT DATE: 20190607
